FAERS Safety Report 7154000-1 (Version None)
Quarter: 2010Q4

REPORT INFORMATION
  Report Type: 
  Country: None (occurrence: None)
  Receive Date: 20101213
  Receipt Date: 20101209
  Transmission Date: 20110411
  Serious: Yes (Death)
  Sender: FDA-Public Use
  Company Number: JP-ABBOTT-10P-087-0690539-00

PATIENT
  Sex: Female

DRUGS (1)
  1. HUMIRA [Suspect]
     Indication: RHEUMATOID ARTHRITIS
     Route: 058
     Dates: start: 20100311, end: 20100922

REACTIONS (5)
  - ELECTROLYTE IMBALANCE [None]
  - ENCEPHALOPATHY [None]
  - GENERAL PHYSICAL HEALTH DETERIORATION [None]
  - LYMPHOMA [None]
  - PNEUMOCYSTIS JIROVECI PNEUMONIA [None]
